FAERS Safety Report 17966015 (Version 2)
Quarter: 2020Q3

REPORT INFORMATION
  Report Type: Spontaneous
  Country: US (occurrence: US)
  Receive Date: 20200701
  Receipt Date: 20200811
  Transmission Date: 20201103
  Serious: No
  Sender: FDA-Public Use
  Company Number: US-GLAXOSMITHKLINE-US2020107079

PATIENT
  Age: 51 Year
  Sex: Female

DRUGS (2)
  1. EPIPEN [Suspect]
     Active Substance: EPINEPHRINE
     Indication: PRODUCT USED FOR UNKNOWN INDICATION
     Dosage: UNK
     Route: 065
  2. NUCALA [Suspect]
     Active Substance: MEPOLIZUMAB
     Indication: PRODUCT USED FOR UNKNOWN INDICATION
     Dosage: UNK
     Route: 065
     Dates: start: 20200619

REACTIONS (15)
  - Fatigue [Unknown]
  - Hypoaesthesia oral [Recovered/Resolved]
  - Hypoaesthesia [Unknown]
  - Condition aggravated [Unknown]
  - Bone pain [Unknown]
  - Chest discomfort [Unknown]
  - Burning sensation [Recovered/Resolved]
  - Pain in extremity [Recovered/Resolved]
  - Limb discomfort [Unknown]
  - Crying [Recovered/Resolved]
  - Memory impairment [Unknown]
  - Paraesthesia oral [Unknown]
  - Facial pain [Recovered/Resolved]
  - Limb discomfort [Recovered/Resolved]
  - Abnormal behaviour [Recovered/Resolved]

NARRATIVE: CASE EVENT DATE: 20200619
